FAERS Safety Report 19734468 (Version 2)
Quarter: 2021Q4

REPORT INFORMATION
  Report Type: Spontaneous
  Country: US (occurrence: US)
  Receive Date: 20210823
  Receipt Date: 20211001
  Transmission Date: 20220303
  Serious: Yes (Other)
  Sender: FDA-Public Use
  Company Number: US-ASTELLAS-2021US031082

PATIENT
  Sex: Male

DRUGS (8)
  1. PADCEV [Suspect]
     Active Substance: ENFORTUMAB VEDOTIN-EJFV
     Indication: Transitional cell carcinoma
     Dosage: 95 MG, CYCLIC (DAYS 1, 8 AND 15 OF A 28 DAY CYCLE)(3 WEEKS ON, 1 WEEK OFF)
     Route: 065
     Dates: start: 202103, end: 20210811
  2. CISPLATIN [Suspect]
     Active Substance: CISPLATIN
     Indication: Neoplasm
     Dosage: UNK UNK, UNKNOWN FREQ.
     Route: 065
     Dates: start: 2018
  3. CISPLATIN [Suspect]
     Active Substance: CISPLATIN
     Dosage: UNK UNK, UNKNOWN FREQ.
     Route: 065
  4. KEYTRUDA [Suspect]
     Active Substance: PEMBROLIZUMAB
     Indication: Neoplasm
     Dosage: UNK UNK, UNKNOWN FREQ.
     Route: 065
     Dates: start: 202010
  5. KEYTRUDA [Suspect]
     Active Substance: PEMBROLIZUMAB
     Dosage: UNK UNK, UNKNOWN FREQ.
     Route: 065
  6. BYSTOLIC [Concomitant]
     Active Substance: NEBIVOLOL HYDROCHLORIDE
     Indication: Product used for unknown indication
     Dosage: 5 MG (1 DF), ONCE DAILY (EVERY MORNING)
     Route: 048
  7. TYLENOL [Concomitant]
     Active Substance: ACETAMINOPHEN
     Indication: Product used for unknown indication
     Route: 065
  8. LORAZEPAM [Concomitant]
     Active Substance: LORAZEPAM
     Indication: Product used for unknown indication
     Dosage: 1 MG (1 DF), ONCE DAILY (AT BEDTIME)
     Route: 048

REACTIONS (16)
  - Bronchitis [Not Recovered/Not Resolved]
  - Haemorrhoids [Not Recovered/Not Resolved]
  - Constipation [Not Recovered/Not Resolved]
  - Diarrhoea [Not Recovered/Not Resolved]
  - Sputum increased [Not Recovered/Not Resolved]
  - Asthenia [Not Recovered/Not Resolved]
  - Blood glucose increased [Recovering/Resolving]
  - Fatigue [Not Recovered/Not Resolved]
  - Decreased appetite [Recovering/Resolving]
  - Weight decreased [Recovering/Resolving]
  - Neuropathy peripheral [Not Recovered/Not Resolved]
  - Haemoglobin decreased [Recovering/Resolving]
  - Gait disturbance [Unknown]
  - Fall [Unknown]
  - Alopecia [Not Recovered/Not Resolved]
  - Renal neoplasm [Recovering/Resolving]
